FAERS Safety Report 15695896 (Version 1)
Quarter: 2020Q3

REPORT INFORMATION
  Report Type: Spontaneous
  Country: PL (occurrence: PL)
  Receive Date: 20181206
  Receipt Date: 20181206
  Transmission Date: 20201105
  Serious: Yes (Other)
  Sender: FDA-Public Use
  Company Number: PL-MYLANLABS-2018M1088140

PATIENT
  Age: 61 Year
  Sex: Male

DRUGS (5)
  1. ONDANSETRON [Concomitant]
     Active Substance: ONDANSETRON
     Indication: PROPHYLAXIS OF NAUSEA AND VOMITING
     Route: 065
  2. COTRIMOXAZOLE [Concomitant]
     Active Substance: SULFAMETHOXAZOLE\TRIMETHOPRIM
     Indication: ANTIBIOTIC PROPHYLAXIS
     Route: 065
  3. KETOCONAZOLE. [Suspect]
     Active Substance: KETOCONAZOLE
     Indication: PRODUCT USED FOR UNKNOWN INDICATION
     Dosage: 300 TO 600MG PER DAY
     Route: 065
  4. PASIREOTIDE. [Suspect]
     Active Substance: PASIREOTIDE
     Indication: BLOOD CORTICOTROPHIN
     Route: 058
     Dates: start: 20160201
  5. TEMOZOLOMIDE. [Suspect]
     Active Substance: TEMOZOLOMIDE
     Indication: ADRENOCORTICOTROPIC HORMONE DEFICIENCY
     Dosage: 150?200MG/M2 ONCE DAILY IN THE MORNING FOR FIRST FIVE CONSECUTIVE DAYS OF A 28 DAY CYCLE
     Route: 065
     Dates: start: 20150424, end: 201512

REACTIONS (3)
  - Nausea [Unknown]
  - Deafness [Unknown]
  - Hepatic function abnormal [Unknown]

NARRATIVE: CASE EVENT DATE: 2015
